FAERS Safety Report 24048167 (Version 7)
Quarter: 2024Q4

REPORT INFORMATION
  Report Type: Report from Study
  Country: PH (occurrence: PH)
  Receive Date: 20240703
  Receipt Date: 20241115
  Transmission Date: 20250115
  Serious: Yes (Other)
  Sender: PFIZER
  Company Number: PH-TAKEDA-2023TUS124968

PATIENT
  Age: 25 Year
  Sex: Male

DRUGS (1)
  1. ADCETRIS [Suspect]
     Active Substance: BRENTUXIMAB VEDOTIN
     Indication: Hodgkin^s disease refractory
     Dosage: 150 MILLIGRAM, Q3WEEKS
     Route: 042

REACTIONS (13)
  - Vision blurred [Recovering/Resolving]
  - Neck pain [Recovering/Resolving]
  - Hypoaesthesia [Recovering/Resolving]
  - Back pain [Recovering/Resolving]
  - Nausea [Recovering/Resolving]
  - Vomiting [Recovering/Resolving]
  - Pyrexia [Recovering/Resolving]
  - Illness [Recovered/Resolved]
  - Panic attack [Recovering/Resolving]
  - Food poisoning [Recovering/Resolving]
  - Diarrhoea [Recovered/Resolved]
  - Malaise [Unknown]
  - Road traffic accident [Recovered/Resolved]
